FAERS Safety Report 5320747-2 (Version None)
Quarter: 2007Q2

REPORT INFORMATION
  Report Type: 
  Country: None (occurrence: None)
  Receive Date: 20070509
  Receipt Date: 20070503
  Transmission Date: 20071010
  Serious: Yes (Hospitalization)
  Sender: FDA-Public Use
  Company Number: CA-SHR-CA-2007-012299

PATIENT
  Age: 53 Year
  Sex: Female

DRUGS (5)
  1. MABCAMPATH 30/1ML [Suspect]
     Dosage: 3 MG, DOSE ESCALATION
     Route: 058
     Dates: start: 20070404, end: 20070404
  2. MABCAMPATH 30/1ML [Suspect]
     Dosage: 10 MG, DOSE ESCALATION
     Route: 058
     Dates: start: 20070406, end: 20070406
  3. MABCAMPATH 30/1ML [Suspect]
     Dosage: 30 MG, 3X/WEEK
     Route: 058
  4. TYLENOL [Concomitant]
     Indication: PREMEDICATION
     Dosage: 650 MG, UNK
     Dates: start: 20070401
  5. BENADRYL ^WARNER-LAMBERT^               /CAN/ [Concomitant]
     Indication: PREMEDICATION
     Dosage: 50 MG, UNK
     Dates: start: 20070401

REACTIONS (8)
  - GAIT DISTURBANCE [None]
  - INJECTION SITE ERYTHEMA [None]
  - INJECTION SITE MASS [None]
  - INJECTION SITE PAIN [None]
  - INJECTION SITE SWELLING [None]
  - PAIN [None]
  - PYREXIA [None]
  - SKIN REACTION [None]
